FAERS Safety Report 4512914-2 (Version None)
Quarter: 2004Q4

REPORT INFORMATION
  Report Type: 
  Country: None (occurrence: None)
  Receive Date: 20041123
  Receipt Date: 20041123
  Transmission Date: 20050328
  Serious: No
  Sender: FDA-Public Use
  Company Number: None

PATIENT

DRUGS (2)
  1. COSOPT [Suspect]
     Dosage: 10 ML
  2. COSOPT [Suspect]
     Dosage: 5 ML

REACTIONS (1)
  - MEDICATION ERROR [None]
